FAERS Safety Report 19999526 (Version 1)
Quarter: 2021Q4

REPORT INFORMATION
  Report Type: Spontaneous
  Country: US (occurrence: US)
  Receive Date: 20211027
  Receipt Date: 20211027
  Transmission Date: 20220303
  Serious: Yes (Death, Hospitalization)
  Sender: FDA-Public Use
  Company Number: US-JNJFOC-20211027279

PATIENT
  Age: 37 Year
  Sex: Male
  Weight: 89 kg

DRUGS (3)
  1. TYLENOL [Suspect]
     Active Substance: ACETAMINOPHEN
     Indication: Pain
     Route: 048
  2. VICODIN [Suspect]
     Active Substance: ACETAMINOPHEN\HYDROCODONE BITARTRATE
     Indication: Product used for unknown indication
     Route: 065
  3. VALIUM [Concomitant]
     Active Substance: DIAZEPAM
     Indication: Product used for unknown indication
     Route: 065

REACTIONS (7)
  - Acute hepatic failure [Fatal]
  - Haemorrhage intracranial [Fatal]
  - Brain oedema [Fatal]
  - Acute kidney injury [Fatal]
  - Arrhythmia [Fatal]
  - Cardiomegaly [Fatal]
  - Accidental overdose [Fatal]
